FAERS Safety Report 25893724 (Version 1)
Quarter: 2025Q4

REPORT INFORMATION
  Report Type: Spontaneous
  Country: US (occurrence: US)
  Receive Date: 20251008
  Receipt Date: 20251008
  Transmission Date: 20260118
  Serious: No
  Sender: CSL BEHRING
  Company Number: US-BEH-2025220148

PATIENT
  Sex: Male

DRUGS (2)
  1. HIZENTRA [Suspect]
     Active Substance: HUMAN IMMUNOGLOBULIN G
     Indication: Primary immunodeficiency syndrome
     Dosage: 4 G, QOW
     Route: 058
     Dates: start: 202406
  2. HIZENTRA [Suspect]
     Active Substance: HUMAN IMMUNOGLOBULIN G
     Indication: Hypergammaglobulinaemia
     Dosage: 2 G, QOW
     Route: 058
     Dates: start: 202406

REACTIONS (2)
  - Ear infection [Unknown]
  - Inappropriate schedule of product administration [Unknown]
